FAERS Safety Report 17254114 (Version 1)
Quarter: 2020Q1

REPORT INFORMATION
  Report Type: Spontaneous
  Country: IT (occurrence: IT)
  Receive Date: 20200109
  Receipt Date: 20200109
  Transmission Date: 20200409
  Serious: Yes (Life-Threatening)
  Sender: FDA-Public Use
  Company Number: IT-MYLANLABS-2019M1044999

PATIENT
  Age: 79 Year
  Sex: Female
  Weight: 70 kg

DRUGS (6)
  1. LIMBITRYL 12.5 MG/5 MG CAPSULE RIGIDE [Suspect]
     Active Substance: AMITRIPTYLINE HYDROCHLORIDE\CHLORDIAZEPOXIDE HYDROCHLORIDE
     Indication: DEPRESSION
     Dosage: 25 MILLIGRAM, QD
     Route: 065
     Dates: start: 20130531, end: 20181128
  2. DEPAKIN [Suspect]
     Active Substance: VALPROATE SODIUM
     Indication: PSYCHOTIC DISORDER
     Dosage: 600 MICROGRAM, QD
     Route: 065
     Dates: start: 20130531, end: 20181128
  3. LASIX [Concomitant]
     Active Substance: FUROSEMIDE
     Dosage: 25 MILLIGRAM
  4. SEROQUEL [Suspect]
     Active Substance: QUETIAPINE FUMARATE
     Indication: PSYCHOTIC DISORDER
     Dosage: 200 MICROGRAM, QD
     Dates: start: 20130531, end: 20181128
  5. TILDIEM [Concomitant]
     Active Substance: DILTIAZEM HYDROCHLORIDE
     Indication: HYPERTENSION
     Dosage: 200 MILLIGRAM, QD
     Dates: start: 20090916
  6. LASIX [Concomitant]
     Active Substance: FUROSEMIDE
     Indication: HYPERTENSION
     Dosage: 25 MILLIGRAM, QD

REACTIONS (5)
  - Acute myocardial infarction [Not Recovered/Not Resolved]
  - Myocardial infarction [Not Recovered/Not Resolved]
  - Coma [Not Recovered/Not Resolved]
  - Cardiac failure [Not Recovered/Not Resolved]
  - Respiratory acidosis [Not Recovered/Not Resolved]

NARRATIVE: CASE EVENT DATE: 20181128
